FAERS Safety Report 23273759 (Version 1)
Quarter: 2023Q4

REPORT INFORMATION
  Report Type: Spontaneous
  Country: CN (occurrence: CN)
  Receive Date: 20231207
  Receipt Date: 20231207
  Transmission Date: 20240110
  Serious: Yes (Hospitalization)
  Sender: FDA-Public Use
  Company Number: CN-PFIZER INC-PV202300193211

PATIENT
  Age: 69 Year
  Sex: Female

DRUGS (3)
  1. AVIBACTAM SODIUM [Suspect]
     Active Substance: AVIBACTAM SODIUM
     Indication: Urinary tract infection
     Dosage: 2.5 G, 2X/DAY
     Route: 041
     Dates: start: 20231108, end: 20231109
  2. AVIBACTAM SODIUM [Suspect]
     Active Substance: AVIBACTAM SODIUM
     Indication: Urinary tract infection
     Dosage: 2.5 G, 1X/DAY
     Route: 041
     Dates: start: 20231110, end: 20231115
  3. AVIBACTAM SODIUM [Suspect]
     Active Substance: AVIBACTAM SODIUM
     Indication: Urinary tract infection
     Dosage: 2.5 G, 2X/DAY
     Route: 041
     Dates: start: 20231016, end: 20231022

REACTIONS (4)
  - Blood creatinine increased [Recovering/Resolving]
  - Drug ineffective [Unknown]
  - Product use issue [Unknown]
  - Off label use [Unknown]

NARRATIVE: CASE EVENT DATE: 20231016
